FAERS Safety Report 19176033 (Version 4)
Quarter: 2021Q3

REPORT INFORMATION
  Report Type: Report from Study
  Country: DE (occurrence: DE)
  Receive Date: 20210424
  Receipt Date: 20210910
  Transmission Date: 20211014
  Serious: Yes (Hospitalization, Other)
  Sender: FDA-Public Use
  Company Number: DE-TAKEDA-2021TUS024871

PATIENT
  Age: 63 Year
  Sex: Female

DRUGS (2)
  1. ACC ACUTE [Concomitant]
     Active Substance: ACETYLCYSTEINE
  2. HUMAN IMMUNOGLOBULIN; HYALURONIDASE [Suspect]
     Active Substance: HUMAN IMMUNOGLOBULIN G\HYALURONIDASE RECOMBINANT HUMAN
     Indication: IMMUNODEFICIENCY
     Dosage: 20 GRAM, Q6WEEKS
     Route: 058
     Dates: start: 20140630

REACTIONS (6)
  - Confusional state [Unknown]
  - Implant site pustules [Recovering/Resolving]
  - Dental implantation [Recovered/Resolved]
  - Infection [Not Recovered/Not Resolved]
  - Psychotic disorder [Unknown]
  - Memory impairment [Unknown]

NARRATIVE: CASE EVENT DATE: 20210401
